FAERS Safety Report 6233283-6 (Version None)
Quarter: 2009Q2

REPORT INFORMATION
  Report Type: 
  Country: None (occurrence: None)
  Receive Date: 20090617
  Receipt Date: 20090611
  Transmission Date: 20091009
  Serious: Yes (Other)
  Sender: FDA-Public Use
  Company Number: JP-MERCK-0906USA02491

PATIENT
  Age: 42 Year
  Sex: Male

DRUGS (1)
  1. PROPECIA [Suspect]
     Route: 048
     Dates: start: 20060601

REACTIONS (2)
  - COMA [None]
  - INTENTIONAL OVERDOSE [None]
